FAERS Safety Report 18550679 (Version 1)
Quarter: 2020Q4

REPORT INFORMATION
  Report Type: Report from Study
  Country: US (occurrence: US)
  Receive Date: 20201126
  Receipt Date: 20201126
  Transmission Date: 20210114
  Serious: Yes (Congenital Anomaly, Other)
  Sender: FDA-Public Use
  Company Number: US-TEVA-2019-US-1084959

PATIENT
  Sex: Male

DRUGS (8)
  1. PROVACIN [Concomitant]
     Indication: NIGHTMARE
     Dosage: 1 MG AT QHS (HOUR OF SLEEP)
     Dates: start: 20190722
  2. LORAZEPAM. [Concomitant]
     Active Substance: LORAZEPAM
     Indication: ANXIETY
     Dosage: 0.5 MG AS NEEDED
  3. ZOFRAN [Concomitant]
     Active Substance: ONDANSETRON HYDROCHLORIDE
     Indication: NAUSEA
     Dates: start: 20190719
  4. PROVIGIL [Suspect]
     Active Substance: MODAFINIL
     Indication: ANXIETY
  5. KLONOPIN [Suspect]
     Active Substance: CLONAZEPAM
     Route: 064
  6. MARIJUANA [Suspect]
     Active Substance: CANNABIS SATIVA SUBSP. INDICA TOP
     Route: 064
  7. PROVIGIL [Suspect]
     Active Substance: MODAFINIL
     Indication: POST-TRAUMATIC STRESS DISORDER
     Dosage: 100 MILLIGRAM DAILY;
     Route: 064
     Dates: start: 20190722
  8. MEDICAL MARIJUANA [Concomitant]
     Active Substance: CANNABIS SATIVA SUBSP. INDICA TOP
     Indication: PSYCHOGENIC SEIZURE
     Dosage: LONG STANDING

REACTIONS (5)
  - Failure to thrive [Recovering/Resolving]
  - Foetal exposure during pregnancy [Unknown]
  - Labial tie [Unknown]
  - Gastrooesophageal reflux disease [Recovering/Resolving]
  - Ankyloglossia congenital [Unknown]

NARRATIVE: CASE EVENT DATE: 202002
